FAERS Safety Report 8990023 (Version 2)
Quarter: 2013Q1

REPORT INFORMATION
  Report Type: Spontaneous
  Country: FR (occurrence: FR)
  Receive Date: 20121228
  Receipt Date: 20130102
  Transmission Date: 20140127
  Serious: Yes (Other)
  Sender: FDA-Public Use
  Company Number: FR-TEVA-376734ISR

PATIENT
  Age: 60 Year
  Sex: Male

DRUGS (10)
  1. METHOTREXATE [Suspect]
     Indication: ACUTE PROMYELOCYTIC LEUKAEMIA
     Route: 065
  2. DAUNORUBICIN [Concomitant]
     Indication: ACUTE PROMYELOCYTIC LEUKAEMIA
     Route: 065
  3. CYTARABINE [Concomitant]
     Indication: ACUTE PROMYELOCYTIC LEUKAEMIA
     Route: 065
  4. CYTARABINE [Concomitant]
     Indication: ACUTE PROMYELOCYTIC LEUKAEMIA
     Route: 065
  5. TRETINOIN [Concomitant]
     Indication: ACUTE PROMYELOCYTIC LEUKAEMIA
     Route: 065
  6. TRETINOIN [Concomitant]
     Indication: ACUTE PROMYELOCYTIC LEUKAEMIA
     Route: 065
  7. TRETINOIN [Concomitant]
     Indication: ACUTE PROMYELOCYTIC LEUKAEMIA
     Route: 065
  8. ETOPOSIDE [Concomitant]
     Indication: ACUTE PROMYELOCYTIC LEUKAEMIA
     Route: 065
  9. MITOXANTRONE [Concomitant]
     Indication: ACUTE PROMYELOCYTIC LEUKAEMIA
     Route: 065
  10. PURINETHOL [Concomitant]
     Indication: ACUTE PROMYELOCYTIC LEUKAEMIA
     Route: 065

REACTIONS (1)
  - Hodgkin^s disease [Recovered/Resolved]
